FAERS Safety Report 15960743 (Version 3)
Quarter: 2019Q3

REPORT INFORMATION
  Report Type: Spontaneous
  Country: US (occurrence: US)
  Receive Date: 20190214
  Receipt Date: 20190924
  Transmission Date: 20191004
  Serious: Yes (Other)
  Sender: FDA-Public Use
  Company Number: US-ASTRAZENECA-2018SF14522

PATIENT
  Age: 25526 Day
  Sex: Male

DRUGS (35)
  1. CYCLOBENZAPRINE. [Concomitant]
     Active Substance: CYCLOBENZAPRINE
  2. WARFARIN [Concomitant]
     Active Substance: WARFARIN
  3. ONDANSETRON [Concomitant]
     Active Substance: ONDANSETRON
  4. SUCRALFATE. [Concomitant]
     Active Substance: SUCRALFATE
  5. SUMATRIPTAN. [Concomitant]
     Active Substance: SUMATRIPTAN
  6. SUCRALFATE. [Concomitant]
     Active Substance: SUCRALFATE
  7. AZITHROMYCIN ANHYDROUS. [Concomitant]
     Active Substance: AZITHROMYCIN ANHYDROUS
  8. MIRTAZAPINE. [Concomitant]
     Active Substance: MIRTAZAPINE
  9. DICLOFENAC [Concomitant]
     Active Substance: DICLOFENAC
  10. GABAPENTIN. [Concomitant]
     Active Substance: GABAPENTIN
  11. TRIAMCINOLONE [Concomitant]
     Active Substance: TRIAMCINOLONE
  12. TOPIRAMATE. [Concomitant]
     Active Substance: TOPIRAMATE
  13. FENTANYL. [Concomitant]
     Active Substance: FENTANYL
  14. TAMSULOSIN [Concomitant]
     Active Substance: TAMSULOSIN
  15. POLYETHYLENE GLYCOL [Concomitant]
     Active Substance: POLYETHYLENE GLYCOLS
  16. FENTANYL. [Concomitant]
     Active Substance: FENTANYL
  17. CELEBREX [Concomitant]
     Active Substance: CELECOXIB
  18. NEXIUM [Suspect]
     Active Substance: ESOMEPRAZOLE MAGNESIUM
     Indication: GASTROOESOPHAGEAL REFLUX DISEASE
     Route: 048
  19. PRILOSEC [Suspect]
     Active Substance: OMEPRAZOLE MAGNESIUM
     Indication: GASTROOESOPHAGEAL REFLUX DISEASE
     Route: 048
     Dates: start: 19940101, end: 19980101
  20. POTASSIUM CHLORIDE. [Concomitant]
     Active Substance: POTASSIUM CHLORIDE
  21. CYMBALTA [Concomitant]
     Active Substance: DULOXETINE HYDROCHLORIDE
  22. OXYCODONE [Concomitant]
     Active Substance: OXYCODONE
  23. WARFARIN [Concomitant]
     Active Substance: WARFARIN
  24. TERAZOSIN [Concomitant]
     Active Substance: TERAZOSIN HYDROCHLORIDE
  25. PROMETHAZINE [Concomitant]
     Active Substance: PROMETHAZINE HYDROCHLORIDE
  26. DEXILANT [Suspect]
     Active Substance: DEXLANSOPRAZOLE
     Indication: GASTROOESOPHAGEAL REFLUX DISEASE
     Route: 065
     Dates: start: 20090130, end: 20170101
  27. PROMETHAZINE [Concomitant]
     Active Substance: PROMETHAZINE HYDROCHLORIDE
  28. TAMSULOSIN [Concomitant]
     Active Substance: TAMSULOSIN
  29. PROMETHAZINE [Concomitant]
     Active Substance: PROMETHAZINE HYDROCHLORIDE
  30. ONDANSETRON [Concomitant]
     Active Substance: ONDANSETRON
  31. NEXIUM [Suspect]
     Active Substance: ESOMEPRAZOLE MAGNESIUM
     Indication: GASTROOESOPHAGEAL REFLUX DISEASE
     Route: 048
     Dates: start: 20010220, end: 20050101
  32. OXYCODONE [Concomitant]
     Active Substance: OXYCODONE
  33. OXYCODONE [Concomitant]
     Active Substance: OXYCODONE
  34. PRAVASTATIN. [Concomitant]
     Active Substance: PRAVASTATIN
  35. FENTANYL. [Concomitant]
     Active Substance: FENTANYL

REACTIONS (2)
  - Chronic kidney disease [Not Recovered/Not Resolved]
  - Renal injury [Unknown]

NARRATIVE: CASE EVENT DATE: 20170621
